FAERS Safety Report 7121095-0 (Version None)
Quarter: 2010Q4

REPORT INFORMATION
  Report Type: 
  Country: None (occurrence: None)
  Receive Date: 20101124
  Receipt Date: 20100525
  Transmission Date: 20110411
  Serious: No
  Sender: FDA-Public Use
  Company Number: US-PFIZER INC-2010065571

PATIENT
  Sex: Male

DRUGS (3)
  1. TIKOSYN [Suspect]
     Dosage: UNK
  2. PREVACID [Interacting]
     Dosage: UNK
  3. MAGNESIUM [Interacting]

REACTIONS (2)
  - DIARRHOEA [None]
  - DRUG INTERACTION [None]
